FAERS Safety Report 5211963-9 (Version None)
Quarter: 2007Q1

REPORT INFORMATION
  Report Type: 
  Country: None (occurrence: None)
  Receive Date: 20070118
  Receipt Date: 20070110
  Transmission Date: 20070707
  Serious: Yes (Other)
  Sender: FDA-Public Use
  Company Number: AU-GLAXOSMITHKLINE-B0454535A

PATIENT
  Age: 18 Year
  Sex: Male

DRUGS (1)
  1. CARTIA XT [Suspect]
     Indication: SURGERY
     Route: 048

REACTIONS (5)
  - DEAFNESS UNILATERAL [None]
  - DIZZINESS [None]
  - NAUSEA [None]
  - TINNITUS [None]
  - VERTIGO [None]
